FAERS Safety Report 19814790 (Version 1)
Quarter: 2021Q3

REPORT INFORMATION
  Report Type: Spontaneous
  Country: US (occurrence: US)
  Receive Date: 20210910
  Receipt Date: 20210910
  Transmission Date: 20211014
  Serious: Yes (Other)
  Sender: FDA-Public Use
  Company Number: None

PATIENT
  Age: 80 Year
  Sex: Male
  Weight: 94.5 kg

DRUGS (7)
  1. LIPITOR [Concomitant]
     Active Substance: ATORVASTATIN CALCIUM
  2. REGEN?COV [Suspect]
     Active Substance: CASIRIVIMAB\IMDEVIMAB
     Indication: COVID-19
  3. ALTACE [Concomitant]
     Active Substance: RAMIPRIL
  4. VITAMIN D3 [Concomitant]
     Active Substance: CHOLECALCIFEROL
  5. NAPROSYN [Concomitant]
     Active Substance: NAPROXEN
  6. PLAVIX [Concomitant]
     Active Substance: CLOPIDOGREL BISULFATE
  7. METOPROLOL. [Concomitant]
     Active Substance: METOPROLOL

REACTIONS (8)
  - Tremor [None]
  - Chills [None]
  - Headache [None]
  - COVID-19 [None]
  - Vomiting [None]
  - Dizziness [None]
  - Pyrexia [None]
  - Diarrhoea [None]

NARRATIVE: CASE EVENT DATE: 20210903
